FAERS Safety Report 8941168 (Version 1)
Quarter: 2012Q4

REPORT INFORMATION
  Report Type: 
  Country: US (occurrence: US)
  Receive Date: 20121203
  Receipt Date: 20121203
  Transmission Date: 20130627
  Serious: Yes (Congenital Anomaly, Other)
  Sender: FDA-Public Use
  Company Number: US-PFIZER INC-2012298968

PATIENT
  Sex: Male
  Weight: 4 kg

DRUGS (2)
  1. ZOLOFT [Suspect]
     Indication: DEPRESSION
     Dosage: 100 mg, 2x/day
     Route: 064
     Dates: start: 19990611
  2. PRENATAL VITAMINS [Concomitant]
     Dosage: UNK
     Route: 064
     Dates: start: 19990611

REACTIONS (8)
  - Maternal exposure timing unspecified [Unknown]
  - Patent ductus arteriosus [Recovered/Resolved]
  - Pulmonary artery stenosis congenital [Unknown]
  - Neonatal respiratory distress syndrome [Unknown]
  - Torticollis [Unknown]
  - Atrial septal defect [Unknown]
  - Haematoma [Recovered/Resolved]
  - Contusion [Unknown]
